FAERS Safety Report 4848670-8 (Version None)
Quarter: 2005Q4

REPORT INFORMATION
  Report Type: 
  Country: None (occurrence: None)
  Receive Date: 20051206
  Receipt Date: 20051122
  Transmission Date: 20060501
  Serious: Yes (Death, Hospitalization)
  Sender: FDA-Public Use
  Company Number: GXKR2005FR02038

PATIENT
  Age: 57 Year
  Sex: Male

DRUGS (9)
  1. AMOXICILLIN AND CLAVULANATE POTASSIUM [Suspect]
     Indication: HAEMOPHILUS INFECTION
     Dosage: ORAL
     Route: 048
     Dates: start: 20050506
  2. DEXAMBUTOL(ETHAMBUTOL DIHYDROCHLORIDE) 500MG [Suspect]
     Indication: MYCOBACTERIAL INFECTION
     Dosage: ORAL
     Route: 048
     Dates: start: 20050506
  3. ZIAGEN [Suspect]
     Indication: HIV INFECTION
     Dosage: ORAL
     Route: 048
  4. BACTRIM DS [Suspect]
     Dosage: ORAL
     Route: 048
  5. CLARITHROMYCIN [Suspect]
     Indication: MYCOBACTERIAL INFECTION
     Dosage: ORAL
     Route: 048
     Dates: start: 20050506
  6. ANSATIPIN(RIFABUTIN) 150MG [Suspect]
     Indication: MYCOBACTERIAL INFECTION
     Dosage: ORAL
     Route: 048
     Dates: start: 20050506
  7. NORVIR [Concomitant]
  8. TELZIR (FOSAMPRENAVIR) [Concomitant]
  9. OMEPRAZOLE [Concomitant]

REACTIONS (1)
  - HEPATITIS [None]
